FAERS Safety Report 5993976-2 (Version None)
Quarter: 2008Q4

REPORT INFORMATION
  Report Type: 
  Country: None (occurrence: None)
  Receive Date: 20081212
  Receipt Date: 20081209
  Transmission Date: 20090506
  Serious: Yes (Other)
  Sender: FDA-Public Use
  Company Number: D0059814A

PATIENT
  Sex: Male

DRUGS (5)
  1. REQUIP [Suspect]
     Indication: PARKINSON'S DISEASE
     Route: 048
  2. MILURIT [Suspect]
     Indication: PARKINSON'S DISEASE
     Route: 065
  3. MADOPAR [Suspect]
     Indication: PARKINSON'S DISEASE
     Route: 065
  4. STALEVO 100 [Suspect]
     Indication: PARKINSON'S DISEASE
     Route: 065
  5. NOOTROPIL [Suspect]
     Indication: PARKINSON'S DISEASE
     Route: 065

REACTIONS (3)
  - COORDINATION ABNORMAL [None]
  - HALLUCINATION [None]
  - INSOMNIA [None]
